FAERS Safety Report 8525247 (Version 4)
Quarter: 2013Q1

REPORT INFORMATION
  Report Type: Spontaneous
  Country: CA (occurrence: CA)
  Receive Date: 20120423
  Receipt Date: 20130226
  Transmission Date: 20140127
  Serious: Yes (Other)
  Sender: FDA-Public Use
  Company Number: PHHY2012CA033530

PATIENT
  Age: 85 Year
  Sex: Female

DRUGS (3)
  1. ACLASTA [Suspect]
     Indication: OSTEOPOROSIS
     Dosage: UNK UKN, UNK
     Route: 042
     Dates: start: 20120417
  2. ARICEPT [Concomitant]
  3. COVERSYL [Concomitant]

REACTIONS (6)
  - Dysuria [Unknown]
  - Anxiety [Unknown]
  - Fluid overload [Recovered/Resolved]
  - Application site dryness [Recovered/Resolved]
  - Hypertension [Recovered/Resolved]
  - Blood pressure increased [Unknown]
